FAERS Safety Report 15574234 (Version 1)
Quarter: 2018Q4

REPORT INFORMATION
  Report Type: Spontaneous
  Country: CH (occurrence: CH)
  Receive Date: 20181101
  Receipt Date: 20181101
  Transmission Date: 20190205
  Serious: Yes (Hospitalization)
  Sender: FDA-Public Use
  Company Number: CH-PURDUE-GBR-2018-0060937

PATIENT
  Age: 70 Year
  Sex: Female
  Weight: 89 kg

DRUGS (6)
  1. TARGIN [Suspect]
     Active Substance: NALOXONE HYDROCHLORIDE\OXYCODONE HYDROCHLORIDE
     Dosage: 10 MG, BID
     Route: 048
     Dates: start: 20180826
  2. CANDESARTAN. [Suspect]
     Active Substance: CANDESARTAN
     Indication: PRODUCT USED FOR UNKNOWN INDICATION
     Dosage: 8 MG, DAILY
     Route: 048
     Dates: end: 20180926
  3. LITHIOFOR [Suspect]
     Active Substance: LITHIUM SULFATE
     Indication: PRODUCT USED FOR UNKNOWN INDICATION
     Dosage: 660 MG, UNK (1-0-1.5)
     Route: 048
  4. PANTOZOL CONTROL [Concomitant]
     Dosage: 25 MG, DAILY
     Route: 048
  5. TARGIN [Suspect]
     Active Substance: NALOXONE HYDROCHLORIDE\OXYCODONE HYDROCHLORIDE
     Indication: ARTHRALGIA
     Dosage: 20 MG, BID
     Route: 048
     Dates: start: 20180924, end: 20180926
  6. QUETIAPINE. [Suspect]
     Active Substance: QUETIAPINE
     Indication: PRODUCT USED FOR UNKNOWN INDICATION
     Dosage: 25 MG, DAILY
     Route: 048
     Dates: end: 20181004

REACTIONS (5)
  - Drug interaction [Recovered/Resolved]
  - Fall [Recovering/Resolving]
  - Asthenia [Recovering/Resolving]
  - Dehydration [Recovered/Resolved]
  - Hepatic enzyme increased [Recovering/Resolving]

NARRATIVE: CASE EVENT DATE: 20180924
